FAERS Safety Report 5867422-3 (Version None)
Quarter: 2008Q3

REPORT INFORMATION
  Report Type: 
  Country: None (occurrence: None)
  Receive Date: 20080902
  Receipt Date: 20080901
  Transmission Date: 20090109
  Serious: Yes (Hospitalization, Disabling)
  Sender: FDA-Public Use
  Company Number: PHHO1997FR03054

PATIENT
  Sex: Male
  Weight: 71.5 kg

DRUGS (7)
  1. RAD 666 RAD+ [Suspect]
     Dosage: 5 MG, BID
     Route: 048
     Dates: start: 19970919, end: 19970929
  2. NEORAL [Suspect]
     Route: 048
  3. CORTANCYL [Concomitant]
     Dosage: UNSPECIFIED
     Route: 065
  4. ZYLORIC [Concomitant]
     Dosage: UNSPECIFIED
     Route: 065
  5. LASIX [Concomitant]
     Dosage: UNSPECIFIED
     Route: 065
  6. AMLOR [Concomitant]
     Dosage: UNSPECIFIED
     Route: 065
  7. BACTRIM [Concomitant]
     Dosage: UNSPECIFIED

REACTIONS (3)
  - APHTHOUS STOMATITIS [None]
  - PYREXIA [None]
  - THROMBOCYTOPENIA [None]
